FAERS Safety Report 13805549 (Version 1)
Quarter: 2017Q3

REPORT INFORMATION
  Report Type: Spontaneous
  Country: US (occurrence: US)
  Receive Date: 20170728
  Receipt Date: 20170728
  Transmission Date: 20171127
  Serious: Yes (Disabling)
  Sender: FDA-Public Use
  Company Number: None

PATIENT
  Age: 66 Year

DRUGS (4)
  1. REMICADE [Suspect]
     Active Substance: INFLIXIMAB
     Dosage: ?          QUANTITY:THING?.I N IT .\.;?
  2. MTX [Concomitant]
     Active Substance: METHOTREXATE SODIUM
  3. PREDNISONE. [Concomitant]
     Active Substance: PREDNISONE
  4. HCQ [Concomitant]
     Active Substance: HYDROXYCHLOROQUINE SULFATE

REACTIONS (5)
  - Meningitis bacterial [None]
  - Monoplegia [None]
  - Facial paralysis [None]
  - Aphasia [None]
  - Listeriosis [None]

NARRATIVE: CASE EVENT DATE: 20170626
